FAERS Safety Report 10787434 (Version 2)
Quarter: 2015Q4

REPORT INFORMATION
  Report Type: Report from Study
  Country: US (occurrence: US)
  Receive Date: 20150212
  Receipt Date: 20151028
  Transmission Date: 20160304
  Serious: Yes (Other)
  Sender: FDA-Public Use
  Company Number: US-ROCHE-1162358

PATIENT

DRUGS (4)
  1. RITUXIMAB [Suspect]
     Active Substance: RITUXIMAB
     Dosage: ONE WEEK LATER ON DAY 1 OF A 28-DAY CYCLE (B-R) WAS GIVEN FOR A TOTAL OF 4 CYCLES
     Route: 042
  2. RITUXIMAB [Suspect]
     Active Substance: RITUXIMAB
     Indication: B-CELL LYMPHOMA
     Route: 042
  3. YTTRIUM-90 IBRITUMOMAB TIUXETAN [Suspect]
     Active Substance: IBRITUMOMAB TIUXETAN
     Indication: B-CELL LYMPHOMA
     Route: 065
  4. BENDAMUSTINE [Suspect]
     Active Substance: BENDAMUSTINE
     Indication: B-CELL LYMPHOMA
     Dosage: ON DAYS 1 AND 2 FOR 4 CYCLES
     Route: 065

REACTIONS (12)
  - Infusion related reaction [Unknown]
  - Lymphopenia [Unknown]
  - Thrombocytopenia [Unknown]
  - Hyponatraemia [Unknown]
  - Headache [Unknown]
  - Neutropenia [Unknown]
  - Leukopenia [Unknown]
  - Hyperglycaemia [Unknown]
  - Anaemia [Unknown]
  - Diarrhoea [Unknown]
  - Rectal haemorrhage [Unknown]
  - Progressive multifocal leukoencephalopathy [Unknown]
